FAERS Safety Report 14364015 (Version 1)
Quarter: 2018Q1

REPORT INFORMATION
  Report Type: Spontaneous
  Country: NL (occurrence: NL)
  Receive Date: 20180108
  Receipt Date: 20180108
  Transmission Date: 20180509
  Serious: Yes (Hospitalization)
  Sender: FDA-Public Use
  Company Number: NL-TEVA-2018-NL-844447

PATIENT
  Age: 0 Week
  Sex: Female
  Weight: 2 kg

DRUGS (1)
  1. LABETALOL [Suspect]
     Active Substance: LABETALOL\LABETALOL HYDROCHLORIDE
     Indication: HYPERTENSION
     Dosage: 3 TIMES A DAY 200MG ORAL FROM 2 DAYS POSTPARTUM. POSTPARTUM 48 HOUR: 50MG/HOUR
     Route: 063

REACTIONS (2)
  - Exposure via breast milk [Recovered/Resolved]
  - Food intolerance [Recovered/Resolved]

NARRATIVE: CASE EVENT DATE: 20171115
